FAERS Safety Report 16032171 (Version 1)
Quarter: 2019Q1

REPORT INFORMATION
  Report Type: Spontaneous
  Country: US (occurrence: US)
  Receive Date: 20190304
  Receipt Date: 20190304
  Transmission Date: 20190418
  Serious: No
  Sender: FDA-Public Use
  Company Number: PHEH2019US008373

PATIENT
  Sex: Female

DRUGS (3)
  1. FEMARA [Suspect]
     Active Substance: LETROZOLE
     Indication: BREAST CANCER METASTATIC
     Dosage: 2.5 MG, QD (EARLY IN MORNING BEFORE EATING)
     Route: 048
     Dates: start: 20170830, end: 201805
  2. CELEBREX [Concomitant]
     Active Substance: CELECOXIB
     Indication: OSTEOARTHRITIS
     Dosage: 200 MG, QD (TAKING ON AND OFF FOR THE PAST 15 YEARS, WHEN SHE CHOOSES TO GO OFF HER DOCTOR PUTS HER)
  3. KISQALI [Suspect]
     Active Substance: RIBOCICLIB
     Indication: BREAST CANCER METASTATIC
     Dosage: 600 MG, QD (EARLY IN THE MORNING BEFORE EATING)
     Route: 048
     Dates: start: 20170830, end: 201805

REACTIONS (3)
  - Abdominal pain upper [Unknown]
  - Pulmonary mass [Unknown]
  - Gastric disorder [Unknown]
